FAERS Safety Report 12528715 (Version 2)
Quarter: 2016Q3

REPORT INFORMATION
  Report Type: Spontaneous
  Country: US (occurrence: US)
  Receive Date: 20160705
  Receipt Date: 20160824
  Transmission Date: 20161109
  Serious: Yes (Hospitalization, Other)
  Sender: FDA-Public Use
  Company Number: US-SAOL THERAPEUTICS-2016SAO00013

PATIENT
  Sex: Female

DRUGS (4)
  1. DILAUDID [Suspect]
     Active Substance: HYDROMORPHONE HYDROCHLORIDE
     Indication: PAIN
     Dosage: 0.999 MG, \DAY
     Route: 037
  2. COMPOUNDED BACLOFEN [Suspect]
     Active Substance: BACLOFEN
     Indication: MULTIPLE SCLEROSIS
  3. BACLOFEN (ORAL) [Suspect]
     Active Substance: BACLOFEN
     Indication: PAIN
     Route: 048
  4. COMPOUNDED BACLOFEN [Suspect]
     Active Substance: BACLOFEN
     Indication: PAIN
     Dosage: 7.04 ?G, \DAY
     Route: 037

REACTIONS (8)
  - Drug withdrawal syndrome [Recovered/Resolved]
  - Product preparation error [Recovered/Resolved]
  - Hemiplegia [Unknown]
  - Gait disturbance [Unknown]
  - Multiple sclerosis relapse [Unknown]
  - Weight decreased [Unknown]
  - Malaise [Unknown]
  - Device alarm issue [Recovered/Resolved]
